FAERS Safety Report 7278206-6 (Version None)
Quarter: 2011Q1

REPORT INFORMATION
  Report Type: 
  Country: None (occurrence: None)
  Receive Date: 20110207
  Receipt Date: 20110201
  Transmission Date: 20110831
  Serious: Yes (Other)
  Sender: FDA-Public Use
  Company Number: B0698036A

PATIENT
  Age: 67 Year
  Sex: Male

DRUGS (1)
  1. AVANDAMET [Suspect]
     Route: 048
     Dates: start: 20060101, end: 20080101

REACTIONS (4)
  - MYOCARDIAL INFARCTION [None]
  - CARDIOMEGALY [None]
  - ATRIOVENTRICULAR BLOCK [None]
  - ROTATOR CUFF SYNDROME [None]
